FAERS Safety Report 10026864 (Version 1)
Quarter: 2014Q1

REPORT INFORMATION
  Report Type: Spontaneous
  Country: US (occurrence: US)
  Receive Date: 20140321
  Receipt Date: 20140321
  Transmission Date: 20141002
  Serious: Yes (Other)
  Sender: FDA-Public Use
  Company Number: US-CELGENEUS-163-POMAL-14031938

PATIENT
  Sex: Female

DRUGS (2)
  1. POMALYST [Suspect]
     Indication: PLASMA CELL MYELOMA
     Dosage: 4 MILLIGRAM
     Route: 048
     Dates: start: 201402
  2. POMALYST [Suspect]
     Dosage: 3 MILLIGRAM
     Route: 048
     Dates: start: 201403

REACTIONS (1)
  - Pancytopenia [Unknown]
